FAERS Safety Report 12317021 (Version 1)
Quarter: 2016Q2

REPORT INFORMATION
  Report Type: Other
  Country: GB (occurrence: GB)
  Receive Date: 20160429
  Receipt Date: 20160429
  Transmission Date: 20160815
  Serious: Yes (Hospitalization)
  Sender: FDA-Public Use
  Company Number: GB-CIPLA LTD.-2016GB03532

PATIENT

DRUGS (13)
  1. FLUOROURACIL. [Suspect]
     Active Substance: FLUOROURACIL
     Dosage: UNK, ONCE, 1 CYCLICAL, FORM:UNKNOWN
     Route: 040
  2. ZALTRAP [Suspect]
     Active Substance: ZIV-AFLIBERCEPT
     Dosage: 316 MG, ONCE, 1 CYCLICAL, FORM: INFUSION
     Route: 065
     Dates: start: 20160120, end: 20160120
  3. ZALTRAP [Suspect]
     Active Substance: ZIV-AFLIBERCEPT
     Dosage: 316 MG, ONCE, 1 CYCLICAL, FORM: UNKNOWN
     Route: 065
     Dates: start: 20160203, end: 20160203
  4. ZALTRAP [Suspect]
     Active Substance: ZIV-AFLIBERCEPT
     Dosage: 316 MG, ONCE, 1 CYCLICAL, FORM: UNKNOWN
     Route: 065
     Dates: start: 20160203, end: 20160203
  5. ZALTRAP [Suspect]
     Active Substance: ZIV-AFLIBERCEPT
     Dosage: 316 MG, ONCE, 1 CYCLICAL, FORM: INFUSION
     Route: 065
  6. ZALTRAP [Suspect]
     Active Substance: ZIV-AFLIBERCEPT
     Dosage: 316 MG, ONCE, 1 CYCLICAL, FORM: INFUSION
     Route: 065
     Dates: start: 20160120, end: 20160120
  7. CHEMOTHERAPY NOS [Concomitant]
     Active Substance: UNSPECIFIED INGREDIENT
     Dosage: UNK, FORM: UNKNOWN
     Route: 065
  8. LEUCOVORIN. [Suspect]
     Active Substance: LEUCOVORIN
     Dosage: UNK, ONCE,1 CYCLICAL, FORM:UNKNOWN
     Route: 041
  9. ZALTRAP [Suspect]
     Active Substance: ZIV-AFLIBERCEPT
     Dosage: 316 MG, ONCE, 1 CYCLICAL, FORM: UNKNOWN
     Route: 065
     Dates: start: 20160302, end: 20160302
  10. IRINOTECAN [Suspect]
     Active Substance: IRINOTECAN
     Dosage: UNK, ONCE, 1 CYCLICAL, FORM: UNKNOWN
     Route: 041
  11. FLUOROURACIL. [Suspect]
     Active Substance: FLUOROURACIL
     Dosage: UNK, ONCE, 1 CYCLICAL, FORM: UNKNOWN
     Route: 041
  12. ZALTRAP [Suspect]
     Active Substance: ZIV-AFLIBERCEPT
     Dosage: 316 MG, ONCE, 1 CYCLICAL, FORM: UNKNOWN
     Route: 065
     Dates: start: 20160302, end: 20160302
  13. ZALTRAP [Suspect]
     Active Substance: ZIV-AFLIBERCEPT
     Dosage: 316 MG, ONCE, 1 CYCLICAL, FORM: INFUSION
     Route: 065

REACTIONS (12)
  - Paraesthesia oral [Unknown]
  - Oral herpes [Unknown]
  - Fatigue [Not Recovered/Not Resolved]
  - Lip dry [Unknown]
  - Lethargy [Unknown]
  - Arthralgia [Unknown]
  - Dyspepsia [Unknown]
  - Alopecia [Unknown]
  - Diarrhoea [Unknown]
  - Dry skin [Unknown]
  - Pneumonia [Unknown]
  - Gingival pain [Unknown]
